FAERS Safety Report 8606197 (Version 7)
Quarter: 2013Q2

REPORT INFORMATION
  Report Type: Spontaneous
  Country: US (occurrence: US)
  Receive Date: 20120608
  Receipt Date: 20130603
  Transmission Date: 20140414
  Serious: Yes (Life-Threatening, Hospitalization, Other)
  Sender: FDA-Public Use
  Company Number: US-ASTRAZENECA-2012SE36111

PATIENT
  Age: 57 Year
  Sex: Female
  Weight: 74.8 kg

DRUGS (49)
  1. SEROQUEL [Suspect]
     Indication: SLEEP DISORDER
     Route: 048
  2. SEROQUEL [Suspect]
     Indication: BIPOLAR DISORDER
     Route: 048
  3. SEROQUEL [Suspect]
     Indication: AFFECTIVE DISORDER
     Route: 048
  4. SEROQUEL [Suspect]
     Indication: TACHYPHRENIA
     Route: 048
  5. SEROQUEL [Suspect]
     Indication: ANXIETY
     Route: 048
  6. SEROQUEL [Suspect]
     Indication: SLEEP DISORDER
     Route: 048
  7. SEROQUEL [Suspect]
     Indication: BIPOLAR DISORDER
     Route: 048
  8. SEROQUEL [Suspect]
     Indication: AFFECTIVE DISORDER
     Route: 048
  9. SEROQUEL [Suspect]
     Indication: TACHYPHRENIA
     Route: 048
  10. SEROQUEL [Suspect]
     Indication: ANXIETY
     Route: 048
  11. SEROQUEL [Suspect]
     Indication: SLEEP DISORDER
     Route: 048
  12. SEROQUEL [Suspect]
     Indication: BIPOLAR DISORDER
     Route: 048
  13. SEROQUEL [Suspect]
     Indication: AFFECTIVE DISORDER
     Route: 048
  14. SEROQUEL [Suspect]
     Indication: TACHYPHRENIA
     Route: 048
  15. SEROQUEL [Suspect]
     Indication: ANXIETY
     Route: 048
  16. SEROQUEL [Suspect]
     Indication: SLEEP DISORDER
     Route: 048
  17. SEROQUEL [Suspect]
     Indication: BIPOLAR DISORDER
     Route: 048
  18. SEROQUEL [Suspect]
     Indication: AFFECTIVE DISORDER
     Route: 048
  19. SEROQUEL [Suspect]
     Indication: TACHYPHRENIA
     Route: 048
  20. SEROQUEL [Suspect]
     Indication: ANXIETY
     Route: 048
  21. SEROQUEL [Suspect]
     Indication: SLEEP DISORDER
     Route: 048
  22. SEROQUEL [Suspect]
     Indication: BIPOLAR DISORDER
     Route: 048
  23. SEROQUEL [Suspect]
     Indication: AFFECTIVE DISORDER
     Route: 048
  24. SEROQUEL [Suspect]
     Indication: TACHYPHRENIA
     Route: 048
  25. SEROQUEL [Suspect]
     Indication: ANXIETY
     Route: 048
  26. SEROQUEL [Suspect]
     Indication: SLEEP DISORDER
     Route: 048
  27. SEROQUEL [Suspect]
     Indication: BIPOLAR DISORDER
     Route: 048
  28. SEROQUEL [Suspect]
     Indication: AFFECTIVE DISORDER
     Route: 048
  29. SEROQUEL [Suspect]
     Indication: TACHYPHRENIA
     Route: 048
  30. SEROQUEL [Suspect]
     Indication: ANXIETY
     Route: 048
  31. SEROQUEL [Suspect]
     Indication: SLEEP DISORDER
     Route: 048
  32. SEROQUEL [Suspect]
     Indication: BIPOLAR DISORDER
     Route: 048
  33. SEROQUEL [Suspect]
     Indication: AFFECTIVE DISORDER
     Route: 048
  34. SEROQUEL [Suspect]
     Indication: TACHYPHRENIA
     Route: 048
  35. SEROQUEL [Suspect]
     Indication: ANXIETY
     Route: 048
  36. SEROQUEL [Suspect]
     Indication: SLEEP DISORDER
     Route: 048
     Dates: start: 2003
  37. SEROQUEL [Suspect]
     Indication: BIPOLAR DISORDER
     Route: 048
     Dates: start: 2003
  38. SEROQUEL [Suspect]
     Indication: AFFECTIVE DISORDER
     Route: 048
     Dates: start: 2003
  39. SEROQUEL [Suspect]
     Indication: TACHYPHRENIA
     Route: 048
     Dates: start: 2003
  40. SEROQUEL [Suspect]
     Indication: ANXIETY
     Route: 048
     Dates: start: 2003
  41. SEROQUEL [Suspect]
     Indication: SLEEP DISORDER
     Route: 048
     Dates: start: 2010
  42. SEROQUEL [Suspect]
     Indication: BIPOLAR DISORDER
     Route: 048
     Dates: start: 2010
  43. SEROQUEL [Suspect]
     Indication: AFFECTIVE DISORDER
     Route: 048
     Dates: start: 2010
  44. SEROQUEL [Suspect]
     Indication: TACHYPHRENIA
     Route: 048
     Dates: start: 2010
  45. SEROQUEL [Suspect]
     Indication: ANXIETY
     Route: 048
     Dates: start: 2010
  46. DEPAKOTE [Concomitant]
     Indication: AFFECTIVE DISORDER
     Dates: start: 2003
  47. CLONOPIN [Concomitant]
     Indication: ANXIETY
     Dates: start: 2003
  48. LEVOTHYROXINE [Concomitant]
     Indication: THYROID DISORDER
     Dates: start: 2003
  49. DESMOPRESSIN [Concomitant]
     Indication: ACCIDENT

REACTIONS (16)
  - Insomnia [Unknown]
  - Suicide attempt [Unknown]
  - Suicidal ideation [Unknown]
  - Bipolar disorder [Unknown]
  - Infection [Unknown]
  - Decreased immune responsiveness [Unknown]
  - Mania [Unknown]
  - General physical health deterioration [Unknown]
  - Anxiety [Unknown]
  - Confusional state [Unknown]
  - Nervousness [Unknown]
  - Intentional drug misuse [Unknown]
  - Drug ineffective for unapproved indication [Unknown]
  - Off label use [Unknown]
  - Intentional drug misuse [Unknown]
  - Drug dose omission [Unknown]
